FAERS Safety Report 14769860 (Version 1)
Quarter: 2018Q2

REPORT INFORMATION
  Report Type: Other
  Country: None (occurrence: US)
  Receive Date: 20180417
  Receipt Date: 20180417
  Transmission Date: 20180711
  Serious: Yes (Other)
  Sender: FDA-Public Use
  Company Number: US-MEDAC PHARMA, INC.-2045873

PATIENT
  Age: 8 Year
  Sex: Female

DRUGS (2)
  1. FOLIC ACID. [Concomitant]
     Active Substance: FOLIC ACID
  2. METHOTREXATE. [Suspect]
     Active Substance: METHOTREXATE
     Indication: PSORIASIS
     Route: 058

REACTIONS (5)
  - Irritability [Recovered/Resolved]
  - Physical assault [Recovered/Resolved]
  - Depressed mood [Recovered/Resolved]
  - Neurotoxicity [Recovered/Resolved]
  - Mood altered [Recovered/Resolved]
